FAERS Safety Report 9339357 (Version 4)
Quarter: 2013Q4

REPORT INFORMATION
  Report Type: Report from Study
  Country: FR (occurrence: FR)
  Receive Date: 20130610
  Receipt Date: 20131224
  Transmission Date: 20140711
  Serious: Yes (Hospitalization)
  Sender: FDA-Public Use
  Company Number: FR-NOVOPROD-377324

PATIENT
  Age: 62 Year
  Sex: Male
  Weight: 89.5 kg

DRUGS (6)
  1. LIRAGLUTIDE FLEXPEN [Suspect]
     Indication: TYPE 2 DIABETES MELLITUS
     Dosage: 1.8 MG, QD
     Route: 058
     Dates: start: 20121206, end: 20130417
  2. PLACEBO PDS290 [Suspect]
     Indication: TYPE 2 DIABETES MELLITUS
     Dosage: 10 U, QD
     Route: 058
     Dates: start: 20130318, end: 20130417
  3. METFORMINE [Concomitant]
     Indication: TYPE 2 DIABETES MELLITUS
     Dosage: 3 G, QD
     Route: 048
     Dates: start: 2001
  4. NISISCO [Concomitant]
     Indication: HYPERTENSION
     Dosage: UNK
     Route: 048
     Dates: start: 2007
  5. PRAVACOL [Concomitant]
     Indication: DYSLIPIDAEMIA
     Dosage: UNK
     Route: 048
     Dates: start: 2009
  6. OMEPRAZOLE [Concomitant]
     Indication: AEROPHAGIA
     Dosage: UNK
     Route: 048
     Dates: start: 20130131

REACTIONS (1)
  - Systemic inflammatory response syndrome [Recovered/Resolved]
